FAERS Safety Report 5112953-7 (Version None)
Quarter: 2006Q3

REPORT INFORMATION
  Report Type: 
  Country: None (occurrence: None)
  Receive Date: 20060920
  Receipt Date: 20060911
  Transmission Date: 20061208
  Serious: Yes (Other)
  Sender: FDA-Public Use
  Company Number: CHPA2006US09211

PATIENT
  Sex: 0

DRUGS (1)
  1. EXCEDRIN (MIGRAINE) [Suspect]

REACTIONS (1)
  - DRUG DEPENDENCE [None]
